APPROVED DRUG PRODUCT: PEMOLINE
Active Ingredient: PEMOLINE
Strength: 37.5MG
Dosage Form/Route: TABLET;ORAL
Application: A075030 | Product #001
Applicant: TEVA PHARMACEUTICALS USA
Approved: Jan 29, 1999 | RLD: No | RS: No | Type: DISCN